FAERS Safety Report 8396019-9 (Version None)
Quarter: 2012Q2

REPORT INFORMATION
  Report Type: 
  Country: None (occurrence: None)
  Receive Date: 20120530
  Receipt Date: 20120521
  Transmission Date: 20120825
  Serious: Yes (Death, Hospitalization)
  Sender: FDA-Public Use
  Company Number: US-ROCHE-1067335

PATIENT
  Age: 67 Year
  Sex: Male
  Weight: 49.9 kg

DRUGS (13)
  1. SIMVASTATIN [Concomitant]
  2. ASPIRIN [Concomitant]
  3. ZOLPIDEM [Concomitant]
  4. MORPHINE [Concomitant]
  5. NEXIUM [Concomitant]
  6. POTASSIUM CHLORIDE [Concomitant]
  7. AVASTIN [Suspect]
     Indication: NEOPLASM MALIGNANT
     Dosage: 10 MG/KG IV OVER 30-90 MIN ON DAYS 1 AND 15 OF CYCLE (28 DAYS )
     Route: 042
     Dates: start: 20111216, end: 20120406
  8. TEMSIROLIMUS [Suspect]
     Indication: NEOPLASM MALIGNANT
     Dosage: 25 MG IV ON DAYS 1, 8, 15, 22 OF CYCLE
     Route: 042
     Dates: start: 20111216, end: 20120406
  9. SODIUM PHOSPHATE [Concomitant]
  10. METOPROLOL TARTRATE [Concomitant]
  11. POTASSIUM CHLORIDE [Concomitant]
  12. ZOFRAN [Concomitant]
  13. PROMETHAZINE [Concomitant]

REACTIONS (1)
  - CARDIAC ARREST [None]
